FAERS Safety Report 5501200-X (Version None)
Quarter: 2007Q4

REPORT INFORMATION
  Report Type: 
  Country: None (occurrence: None)
  Receive Date: 20071029
  Receipt Date: 20071018
  Transmission Date: 20080405
  Serious: Yes (Hospitalization, Disabling)
  Sender: FDA-Public Use
  Company Number: BR-PFIZER INC-2007085716

PATIENT
  Sex: Female

DRUGS (1)
  1. EXUBERA [Suspect]
     Indication: DIABETES MELLITUS
     Route: 055

REACTIONS (7)
  - ANTI-INSULIN ANTIBODY [None]
  - BLINDNESS [None]
  - BLINDNESS UNILATERAL [None]
  - COUGH [None]
  - DIABETES MELLITUS INADEQUATE CONTROL [None]
  - HYPERGLYCAEMIA [None]
  - LUNG DISORDER [None]
